FAERS Safety Report 23423451 (Version 1)
Quarter: 2024Q1

REPORT INFORMATION
  Report Type: Spontaneous
  Country: None (occurrence: US)
  Receive Date: 20240119
  Receipt Date: 20240119
  Transmission Date: 20240410
  Serious: No
  Sender: FDA-Public Use
  Company Number: US-Ascent Pharmaceuticals, Inc.-2151599

PATIENT
  Age: 70 Year
  Sex: Male
  Weight: 102.27 kg

DRUGS (8)
  1. POTASSIUM CITRATE [Suspect]
     Active Substance: POTASSIUM CITRATE
     Indication: Nephrolithiasis
     Route: 065
  2. METFORMIN [Concomitant]
     Active Substance: METFORMIN HYDROCHLORIDE
  3. LISINOPRIL [Concomitant]
     Active Substance: LISINOPRIL
  4. ASPIRIN [Concomitant]
     Active Substance: ASPIRIN
  5. SIMVASTATIN [Concomitant]
     Active Substance: SIMVASTATIN
  6. PIOGLITAZONE [Concomitant]
     Active Substance: PIOGLITAZONE
  7. TAMSULOSIN HYDROCHLORIDE [Concomitant]
     Active Substance: TAMSULOSIN HYDROCHLORIDE
  8. VITAMIN A D [Concomitant]

REACTIONS (2)
  - Product residue present [Recovered/Resolved]
  - Product solubility abnormal [Recovered/Resolved]
